FAERS Safety Report 4578148-0 (Version None)
Quarter: 2005Q1

REPORT INFORMATION
  Report Type: 
  Country: None (occurrence: None)
  Receive Date: 20050211
  Receipt Date: 20050128
  Transmission Date: 20050727
  Serious: Yes (Death)
  Sender: FDA-Public Use
  Company Number: PHHO2005JP01875

PATIENT
  Age: 32 Year
  Sex: Male

DRUGS (1)
  1. IMATINIB [Suspect]
     Indication: ACUTE LYMPHOCYTIC LEUKAEMIA
     Route: 048

REACTIONS (5)
  - CHEST PAIN [None]
  - DYSPNOEA [None]
  - LUNG INFILTRATION [None]
  - PLATELET COUNT DECREASED [None]
  - PULMONARY HAEMORRHAGE [None]
